FAERS Safety Report 10375653 (Version 1)
Quarter: 2014Q3

REPORT INFORMATION
  Report Type: Spontaneous
  Country: CN (occurrence: CN)
  Receive Date: 20140811
  Receipt Date: 20140811
  Transmission Date: 20150326
  Serious: Yes (Other)
  Sender: FDA-Public Use
  Company Number: CN-ASTRAZENECA-2014SE57410

PATIENT
  Sex: Male
  Weight: 70 kg

DRUGS (1)
  1. ESOMEPRAZOLE MAGNESIUM. [Suspect]
     Active Substance: ESOMEPRAZOLE MAGNESIUM
     Indication: ILL-DEFINED DISORDER
     Route: 048
     Dates: start: 20131202, end: 20131202

REACTIONS (7)
  - Hyperhidrosis [Recovered/Resolved]
  - Tachypnoea [Recovered/Resolved]
  - Dizziness [Recovered/Resolved]
  - Nausea [Recovered/Resolved]
  - Flushing [Recovered/Resolved]
  - Visual acuity reduced [Recovered/Resolved]
  - Respiratory failure [Recovered/Resolved]
